FAERS Safety Report 15721310 (Version 1)
Quarter: 2018Q4

REPORT INFORMATION
  Report Type: Report from Study
  Country: US (occurrence: US)
  Receive Date: 20181214
  Receipt Date: 20181214
  Transmission Date: 20190205
  Serious: Yes (Hospitalization, Other)
  Sender: FDA-Public Use
  Company Number: US-HORIZON-HPN-100-014-0050-2018

PATIENT
  Age: 19 Year
  Sex: Female

DRUGS (3)
  1. COND. ESSENTIAL AMINO ACIDS EEA [Concomitant]
     Dates: start: 20180305
  2. L-ARGININE [Concomitant]
     Active Substance: ARGININE
     Dosage: 231 MG/KG DAILY
  3. RAVICTI [Suspect]
     Active Substance: GLYCEROL PHENYLBUTYRATE
     Indication: ARGININOSUCCINATE SYNTHETASE DEFICIENCY
     Dosage: CURRENT DOSE 13 CC/ML QD
     Route: 048
     Dates: start: 20140416

REACTIONS (1)
  - Hyperammonaemia [Recovered/Resolved]

NARRATIVE: CASE EVENT DATE: 20181203
